FAERS Safety Report 11467509 (Version 2)
Quarter: 2015Q3

REPORT INFORMATION
  Report Type: Report from Study
  Country: BR (occurrence: BR)
  Receive Date: 20150908
  Receipt Date: 20150911
  Transmission Date: 20151125
  Serious: Yes (Hospitalization)
  Sender: FDA-Public Use
  Company Number: PHHY2015BR084071

PATIENT
  Sex: Female
  Weight: 60 kg

DRUGS (1)
  1. EXJADE [Suspect]
     Active Substance: DEFERASIROX
     Indication: SICKLE CELL ANAEMIA
     Dosage: 4 DF (2 TABLETS OF 500 MG, 1 TABLET OF 125 MG AND 1 TABLET OF 250 MG), UNK
     Route: 065

REACTIONS (4)
  - Accident [Unknown]
  - Ulcer [Unknown]
  - No therapeutic response [Unknown]
  - Infection [Unknown]

NARRATIVE: CASE EVENT DATE: 2005
